FAERS Safety Report 13645784 (Version 1)
Quarter: 2017Q2

REPORT INFORMATION
  Report Type: Spontaneous
  Country: DE (occurrence: DE)
  Receive Date: 20170613
  Receipt Date: 20170613
  Transmission Date: 20170830
  Serious: Yes (Other)
  Sender: FDA-Public Use
  Company Number: DE-ROCHE-1946537

PATIENT
  Age: 3 Year
  Sex: Female

DRUGS (1)
  1. ROACTEMRA [Suspect]
     Active Substance: TOCILIZUMAB
     Indication: AUTOIMMUNE DISORDER
     Dosage: ABSOLUTE DOSE: 80 MG
     Route: 042
     Dates: start: 20170606

REACTIONS (3)
  - Circulatory collapse [Recovered/Resolved]
  - Respiratory failure [Recovered/Resolved]
  - Off label use [Unknown]

NARRATIVE: CASE EVENT DATE: 20170606
